FAERS Safety Report 13142758 (Version 1)
Quarter: 2017Q1

REPORT INFORMATION
  Report Type: Spontaneous
  Country: CN (occurrence: CN)
  Receive Date: 20170124
  Receipt Date: 20170124
  Transmission Date: 20170428
  Serious: Yes (Other)
  Sender: FDA-Public Use
  Company Number: CN-BAYER-2017-008489

PATIENT
  Age: 35 Year
  Sex: Female

DRUGS (5)
  1. DACARBAZINE. [Suspect]
     Active Substance: DACARBAZINE
     Indication: DESMOID TUMOUR
     Dosage: UNK
     Route: 041
  2. DOXORUBICIN [Suspect]
     Active Substance: DOXORUBICIN
     Indication: DESMOID TUMOUR
     Dosage: DAILY DOSE 20 MG/M2
     Route: 042
     Dates: start: 20121011
  3. MELOXICAM. [Suspect]
     Active Substance: MELOXICAM
     Indication: DESMOID TUMOUR
     Dosage: 10 MG/M2, UNK
  4. DACARBAZINE. [Suspect]
     Active Substance: DACARBAZINE
     Indication: DESMOID TUMOUR
     Dosage: 150 MG/M2 DAILY THROUGHOUT 4 DAYS OF DRIP INTRAVENOUS INFUSION EVERY 28 DAYS
     Route: 041
     Dates: start: 20121011
  5. MELOXICAM. [Suspect]
     Active Substance: MELOXICAM
     Indication: DESMOID TUMOUR
     Dosage: 7.5 MG, BID

REACTIONS (1)
  - Intestinal perforation [Recovered/Resolved]
